FAERS Safety Report 10135089 (Version 2)
Quarter: 2015Q1

REPORT INFORMATION
  Report Type: Other
  Country: US (occurrence: US)
  Receive Date: 20140428
  Receipt Date: 20150219
  Transmission Date: 20150720
  Serious: Yes (Hospitalization, Other)
  Sender: FDA-Public Use
  Company Number: US-GSKPPD-2014GSK036975

PATIENT
  Age: 56 Year
  Sex: Female

DRUGS (8)
  1. TENORMIN [Concomitant]
     Active Substance: ATENOLOL
     Dates: end: 200309
  2. NITROGLYCERIN. [Concomitant]
     Active Substance: NITROGLYCERIN
     Route: 060
  3. ALTACE [Concomitant]
     Active Substance: RAMIPRIL
  4. MICARDIS [Concomitant]
     Active Substance: TELMISARTAN
     Dates: end: 200309
  5. FUROSEMIDE. [Concomitant]
     Active Substance: FUROSEMIDE
  6. AVANDIA [Suspect]
     Active Substance: ROSIGLITAZONE MALEATE
     Indication: DIABETES MELLITUS
     Dosage: DATE OF AVANDIA USE COULD NOT BE CONFIRMED IN RECORDS REVIEWED.
     Route: 048
     Dates: end: 200309
  7. ASPIRIN. [Concomitant]
     Active Substance: ASPIRIN
  8. CARDIZEM CD [Concomitant]
     Active Substance: DILTIAZEM HYDROCHLORIDE

REACTIONS (2)
  - Myocardial infarction [Recovered/Resolved]
  - Cardiac failure congestive [Recovered/Resolved]

NARRATIVE: CASE EVENT DATE: 20030914
